FAERS Safety Report 5117990-4 (Version None)
Quarter: 2006Q3

REPORT INFORMATION
  Report Type: 
  Country: None (occurrence: None)
  Receive Date: 20060926
  Receipt Date: 20060913
  Transmission Date: 20061208
  Serious: Yes (Other)
  Sender: FDA-Public Use
  Company Number: 2006056779

PATIENT
  Age: 63 Year
  Sex: Female

DRUGS (3)
  1. PHENYTOIN SODIUM [Suspect]
     Indication: CONVULSION
     Dosage: 200MG OR 300MG (100MG, 1 IN 1 D) ORAL
     Route: 048
     Dates: start: 19910101
  2. PHENYTOIN [Suspect]
     Indication: CONVULSION
     Dosage: 2 OR 3 TABLETS (100 MG DAILY) ORAL
     Route: 048
     Dates: start: 20060201
  3. GARDENALE (PHENOBARBITAL SODIUM) [Concomitant]

REACTIONS (4)
  - AGITATION [None]
  - EPILEPSY [None]
  - MALAISE [None]
  - THERAPEUTIC RESPONSE UNEXPECTED WITH DRUG SUBSTITUTION [None]
